FAERS Safety Report 16928031 (Version 2)
Quarter: 2024Q2

REPORT INFORMATION
  Report Type: Other
  Country: US (occurrence: None)
  Receive Date: 20191017
  Receipt Date: 20240528
  Transmission Date: 20240716
  Serious: Yes (Hospitalization, Other)
  Sender: FDA-Public Use
  Company Number: US-ROCHE-2436145

PATIENT
  Age: 55 Year
  Sex: Female
  Weight: 68.554 kg

DRUGS (17)
  1. OCREVUS [Suspect]
     Active Substance: OCRELIZUMAB
     Indication: Primary progressive multiple sclerosis
     Dosage: 01/MAY/2018, 01/NOV/2018, 18/NOV/2018, 06/MAY/2019
     Route: 065
  2. MAGNESIUM [Concomitant]
     Active Substance: MAGNESIUM
  3. PLAVIX [Concomitant]
     Active Substance: CLOPIDOGREL BISULFATE
  4. EXCEDRIN (UNITED STATES) [Concomitant]
     Indication: Pain
  5. ACETAMINOPHEN [Concomitant]
     Active Substance: ACETAMINOPHEN
  6. ASPIRIN [Concomitant]
     Active Substance: ASPIRIN
  7. LITHIUM [Concomitant]
     Active Substance: LITHIUM
  8. FETZIMA [Concomitant]
     Active Substance: LEVOMILNACIPRAN HYDROCHLORIDE
     Dosage: EVERY BEDTIME
  9. TOPAMAX [Concomitant]
     Active Substance: TOPIRAMATE
  10. ZOFRAN [Concomitant]
     Active Substance: ONDANSETRON HYDROCHLORIDE
  11. BISOPROLOL FUMARATE [Concomitant]
     Active Substance: BISOPROLOL FUMARATE
     Dosage: EVERY NIGHT
  12. MIRTAZAPINE [Concomitant]
     Active Substance: MIRTAZAPINE
     Dosage: EVERY NIGHT
  13. METOPRAMIDE [Concomitant]
     Dosage: EVERY NIGHT
  14. CLONAZEPAM [Concomitant]
     Active Substance: CLONAZEPAM
  15. IMIPRAMINE [Concomitant]
     Active Substance: IMIPRAMINE
  16. LACTULOSE [Concomitant]
     Active Substance: LACTULOSE
     Dosage: 10GM/15 ML AS NEEDED
  17. LAMOTRIGINE [Concomitant]
     Active Substance: LAMOTRIGINE

REACTIONS (8)
  - Pneumonia [Recovered/Resolved]
  - Ammonia increased [Recovered/Resolved]
  - Fall [Unknown]
  - Haematological infection [Recovered/Resolved]
  - Arthropathy [Not Recovered/Not Resolved]
  - Gait disturbance [Not Recovered/Not Resolved]
  - Muscular weakness [Recovered/Resolved]
  - Tremor [Recovered/Resolved]

NARRATIVE: CASE EVENT DATE: 20180101
